FAERS Safety Report 7732864-8 (Version None)
Quarter: 2011Q3

REPORT INFORMATION
  Report Type: 
  Country: None (occurrence: None)
  Receive Date: 20110907
  Receipt Date: 20110825
  Transmission Date: 20111222
  Serious: Yes (Hospitalization)
  Sender: FDA-Public Use
  Company Number: PHHO2011CA14777

PATIENT
  Sex: Male
  Weight: 92 kg

DRUGS (6)
  1. EMEND [Concomitant]
     Dosage: UNK
     Dates: start: 20110808, end: 20110810
  2. ZOFRAN [Concomitant]
     Dosage: UNK
     Dates: start: 20110810, end: 20110812
  3. ASPIRIN [Concomitant]
     Dosage: UNK
     Dates: start: 20060101
  4. FLUOROURACIL [Suspect]
     Dosage: 1000 MG/M2
     Route: 042
     Dates: start: 20110809
  5. CISPLATIN [Suspect]
     Indication: METASTATIC SQUAMOUS CELL CARCINOMA
     Dosage: 250 MG/M2, QW
     Route: 042
     Dates: start: 20110808
  6. DEXAMETHASONE [Concomitant]
     Dosage: UNK
     Dates: start: 20110809, end: 20110811

REACTIONS (4)
  - HYPONATRAEMIA [None]
  - DEHYDRATION [None]
  - SYNCOPE [None]
  - CONTUSION [None]
